FAERS Safety Report 10130023 (Version 1)
Quarter: 2014Q2

REPORT INFORMATION
  Report Type: Spontaneous
  Country: US (occurrence: None)
  Receive Date: 20140424
  Receipt Date: 20140424
  Transmission Date: 20141212
  Serious: Yes (Other)
  Sender: FDA-Public Use
  Company Number: 2014SA040531

PATIENT
  Age: 64 Year
  Sex: Female
  Weight: 159 kg

DRUGS (1)
  1. ICY HOT [Suspect]
     Indication: PRODUCT USED FOR UNKNOWN INDICATION
     Dates: start: 20131201, end: 20140228

REACTIONS (5)
  - Pain [None]
  - Erythema [None]
  - Gait disturbance [None]
  - Skin burning sensation [None]
  - Skin exfoliation [None]
